FAERS Safety Report 24680528 (Version 1)
Quarter: 2024Q4

REPORT INFORMATION
  Report Type: Spontaneous
  Country: IN (occurrence: IN)
  Receive Date: 20241129
  Receipt Date: 20241129
  Transmission Date: 20250115
  Serious: Yes (Death)
  Sender: PFIZER
  Company Number: IN-PFIZER INC-202100983927

PATIENT
  Age: 68 Year
  Sex: Female

DRUGS (6)
  1. PALBOCICLIB [Suspect]
     Active Substance: PALBOCICLIB
     Dosage: 125 MG, 1X/DAY
     Route: 048
     Dates: start: 20210407
  2. FULVESTRANT [Concomitant]
     Active Substance: FULVESTRANT
     Dosage: 500 MG, MONTHLY
     Route: 030
  3. ONCOLIFE PLUS [Concomitant]
     Dosage: 0-1-0 AFTER FOOD
  4. PAN [Concomitant]
     Dosage: 40 MG, 1-0-0 BEFORE FOOD
  5. SUPRACAL [CALCIUM] [Concomitant]
     Dosage: 0-1-0 AFTER FOOD
  6. XGEVA [Concomitant]
     Active Substance: DENOSUMAB
     Dosage: 120 MG, MONTHLY
     Route: 058

REACTIONS (3)
  - Death [Fatal]
  - White blood cell disorder [Unknown]
  - Product prescribing error [Unknown]

NARRATIVE: CASE EVENT DATE: 20241104
